FAERS Safety Report 7709017-2 (Version None)
Quarter: 2011Q3

REPORT INFORMATION
  Report Type: 
  Country: None (occurrence: None)
  Receive Date: 20110825
  Receipt Date: 20110811
  Transmission Date: 20111222
  Serious: Yes (Hospitalization)
  Sender: FDA-Public Use
  Company Number: DE-UCBSA-039105

PATIENT
  Sex: Female

DRUGS (3)
  1. LAMOTRIGINE [Concomitant]
     Indication: GRAND MAL CONVULSION
  2. VIMPAT [Suspect]
     Indication: GRAND MAL CONVULSION
     Dosage: 200 MG - 300 MG
  3. VALPROATE SODIUM [Concomitant]
     Indication: GRAND MAL CONVULSION

REACTIONS (1)
  - PETIT MAL EPILEPSY [None]
